FAERS Safety Report 5752440-6 (Version None)
Quarter: 2008Q2

REPORT INFORMATION
  Report Type: 
  Country: None (occurrence: None)
  Receive Date: 20080529
  Receipt Date: 20080522
  Transmission Date: 20081010
  Serious: Yes (Hospitalization)
  Sender: FDA-Public Use
  Company Number: B0522378A

PATIENT
  Age: 11 Year
  Sex: Male

DRUGS (2)
  1. AUGMENTIN '125' [Suspect]
     Dosage: 30MGK FOUR TIMES PER DAY
     Route: 048
     Dates: start: 20071224, end: 20071226
  2. AEROLIN [Concomitant]

REACTIONS (3)
  - ERYTHEMA [None]
  - GENERALISED OEDEMA [None]
  - URTICARIA [None]
